FAERS Safety Report 20799951 (Version 1)
Quarter: 2022Q2

REPORT INFORMATION
  Report Type: Spontaneous
  Country: US (occurrence: US)
  Receive Date: 20220509
  Receipt Date: 20220509
  Transmission Date: 20220720
  Serious: No
  Sender: FDA-Public Use
  Company Number: US-BAYER-2022A062431

PATIENT
  Sex: Female

DRUGS (3)
  1. MIRENA [Suspect]
     Active Substance: LEVONORGESTREL
     Indication: Multiple sclerosis
     Dosage: 20?G/DAY
     Route: 015
     Dates: start: 20210908
  2. MIRENA [Suspect]
     Active Substance: LEVONORGESTREL
     Indication: Intra-uterine contraceptive device insertion
  3. KESIMPTA [Concomitant]
     Active Substance: OFATUMUMAB

REACTIONS (2)
  - Bone pain [None]
  - Hypoaesthesia [None]
